FAERS Safety Report 8798442 (Version 2)
Quarter: 2015Q3

REPORT INFORMATION
  Report Type: Report from Study
  Country: US (occurrence: US)
  Receive Date: 20120920
  Receipt Date: 20150729
  Transmission Date: 20151125
  Serious: Yes (Death)
  Sender: FDA-Public Use
  Company Number: US-ROCHE-1093931

PATIENT
  Age: 58 Year
  Sex: Female

DRUGS (32)
  1. ARANESP [Concomitant]
     Active Substance: DARBEPOETIN ALFA
     Route: 042
  2. DEXAMETHASONE. [Concomitant]
     Active Substance: DEXAMETHASONE
     Route: 042
  3. BENADRYL [Concomitant]
     Active Substance: DIPHENHYDRAMINE HYDROCHLORIDE
     Route: 065
  4. IMODIUM A-D [Concomitant]
     Active Substance: LOPERAMIDE HYDROCHLORIDE
     Dosage: AS NEEDED
     Route: 048
  5. ALPRAZOLAM. [Concomitant]
     Active Substance: ALPRAZOLAM
     Route: 048
  6. AVASTIN [Suspect]
     Active Substance: BEVACIZUMAB
     Indication: BREAST CANCER FEMALE
     Route: 042
  7. ULTRAM [Concomitant]
     Active Substance: TRAMADOL HYDROCHLORIDE
     Dosage: AS NEEDED
     Route: 048
  8. ANDROXY [Concomitant]
     Active Substance: FLUOXYMESTERONE
     Route: 048
  9. AVASTIN [Suspect]
     Active Substance: BEVACIZUMAB
     Route: 042
  10. CARBOPLATIN. [Concomitant]
     Active Substance: CARBOPLATIN
     Route: 042
  11. CARBOPLATIN. [Concomitant]
     Active Substance: CARBOPLATIN
     Route: 042
  12. ZOFRAN [Concomitant]
     Active Substance: ONDANSETRON HYDROCHLORIDE
     Route: 042
  13. DIPHENHYDRAMINE HCL [Concomitant]
     Active Substance: DIPHENHYDRAMINE HYDROCHLORIDE
     Route: 042
  14. ROXICET [Concomitant]
     Active Substance: ACETAMINOPHEN\OXYCODONE HYDROCHLORIDE
     Dosage: AS NEEDED
     Route: 048
  15. VERAPAMIL HCL [Concomitant]
     Active Substance: VERAPAMIL HYDROCHLORIDE
     Route: 048
  16. TRAMADOL HCL [Concomitant]
     Active Substance: TRAMADOL HYDROCHLORIDE
     Dosage: ORAL Q 4 HRS PRN
     Route: 048
  17. AVASTIN [Suspect]
     Active Substance: BEVACIZUMAB
     Route: 042
  18. CARBOPLATIN. [Concomitant]
     Active Substance: CARBOPLATIN
     Route: 042
  19. CARBOPLATIN. [Concomitant]
     Active Substance: CARBOPLATIN
     Route: 042
  20. COMPAZINE [Concomitant]
     Active Substance: PROCHLORPERAZINE MALEATE
     Dosage: AS NEEDED
     Route: 048
  21. ALOXI [Concomitant]
     Active Substance: PALONOSETRON HYDROCHLORIDE
     Route: 042
  22. TAGAMET [Concomitant]
     Active Substance: CIMETIDINE
     Route: 065
  23. TRAZODONE HYDROCHLORIDE. [Concomitant]
     Active Substance: TRAZODONE HYDROCHLORIDE
     Route: 048
  24. ABRAXANE [Concomitant]
     Active Substance: PACLITAXEL
     Route: 042
  25. PACLITAXEL. [Concomitant]
     Active Substance: PACLITAXEL
     Route: 042
  26. ATIVAN [Concomitant]
     Active Substance: LORAZEPAM
     Dosage: AS NEEDED
     Route: 048
  27. CIMETIDINE HCL [Concomitant]
     Route: 042
  28. ARIMIDEX [Concomitant]
     Active Substance: ANASTROZOLE
     Route: 048
  29. NEULASTA [Concomitant]
     Active Substance: PEGFILGRASTIM
     Route: 058
  30. ABRAXANE [Concomitant]
     Active Substance: PACLITAXEL
     Route: 042
  31. TAXOL [Concomitant]
     Active Substance: PACLITAXEL
     Route: 065
  32. TYLENOL [Concomitant]
     Active Substance: ACETAMINOPHEN

REACTIONS (6)
  - Decreased appetite [Unknown]
  - Nausea [Unknown]
  - Fatigue [Unknown]
  - Anxiety [Unknown]
  - Death [Fatal]
  - Pain [Unknown]

NARRATIVE: CASE EVENT DATE: 20060929
